FAERS Safety Report 10053046 (Version 2)
Quarter: 2014Q2

REPORT INFORMATION
  Report Type: Spontaneous
  Country: US (occurrence: US)
  Receive Date: 20140402
  Receipt Date: 20140425
  Transmission Date: 20141212
  Serious: Yes (Other)
  Sender: FDA-Public Use
  Company Number: US-AMGEN-USASP2014022107

PATIENT
  Age: 72 Year
  Sex: Female

DRUGS (6)
  1. SENSIPAR [Suspect]
     Indication: HYPERPARATHYROIDISM SECONDARY
     Dosage: 30 MG, UNK
     Route: 065
     Dates: start: 20140325
  2. METOPROLOL                         /00376903/ [Concomitant]
     Dosage: 50 MG, UNK
  3. CLONIDINE [Concomitant]
     Dosage: 1 MG, UNK
  4. GLIPIZIDE [Concomitant]
     Dosage: 10 MG, UNK
  5. WARFARIN [Concomitant]
  6. ADALAT [Concomitant]
     Dosage: 90 MG, UNK

REACTIONS (2)
  - Blood pressure abnormal [Unknown]
  - Heart rate abnormal [Unknown]
